FAERS Safety Report 7397078-2 (Version None)
Quarter: 2011Q2

REPORT INFORMATION
  Report Type: 
  Country: None (occurrence: None)
  Receive Date: 20110406
  Receipt Date: 20110329
  Transmission Date: 20111010
  Serious: Yes (Hospitalization)
  Sender: FDA-Public Use
  Company Number: A0773332A

PATIENT
  Age: 62 Year
  Sex: Female
  Weight: 109.1 kg

DRUGS (7)
  1. PREDNISOLONE [Concomitant]
  2. AVANDIA [Suspect]
     Indication: DIABETES MELLITUS
     Dosage: 4MG PER DAY
     Route: 048
     Dates: start: 20010101, end: 20070601
  3. METFORMIN [Concomitant]
  4. SIMVASTATIN [Concomitant]
  5. LASIX [Concomitant]
     Dates: start: 19960101
  6. PREDNISONE [Concomitant]
  7. METOPROLOL [Concomitant]

REACTIONS (3)
  - MYOCARDIAL INFARCTION [None]
  - CARDIAC FAILURE CONGESTIVE [None]
  - LUNG DISORDER [None]
